FAERS Safety Report 7296110-4 (Version None)
Quarter: 2011Q1

REPORT INFORMATION
  Report Type: 
  Country: None (occurrence: None)
  Receive Date: 20110216
  Receipt Date: 20110204
  Transmission Date: 20110831
  Serious: Yes (Death, Life-Threatening, Hospitalization)
  Sender: FDA-Public Use
  Company Number: JP-ROCHE-756831

PATIENT
  Sex: Female
  Weight: 46 kg

DRUGS (7)
  1. FLUOROURACIL [Concomitant]
     Route: 040
     Dates: start: 20071108, end: 20080111
  2. AVASTIN [Suspect]
     Indication: COLON CANCER METASTATIC
     Route: 041
     Dates: start: 20071108, end: 20080111
  3. LEVOFOLINATE [Concomitant]
     Dosage: DRUG: LEVOFOLINATE CALCIUM
     Route: 041
     Dates: start: 20071108, end: 20080111
  4. GASTER [Concomitant]
     Dates: start: 20071108, end: 20080111
  5. DECADRON [Concomitant]
     Dates: start: 20071108, end: 20080111
  6. FLUOROURACIL [Concomitant]
     Route: 040
     Dates: start: 20071108, end: 20080101
  7. ELPLAT [Concomitant]
     Route: 041
     Dates: start: 20071108, end: 20080111

REACTIONS (5)
  - CARDIAC FAILURE [None]
  - MULTI-ORGAN FAILURE [None]
  - PYREXIA [None]
  - MUSCLE ABSCESS [None]
  - GASTROINTESTINAL PERFORATION [None]
